FAERS Safety Report 4966140-3 (Version None)
Quarter: 2006Q2

REPORT INFORMATION
  Report Type: 
  Country: None (occurrence: None)
  Receive Date: 20060403
  Receipt Date: 20060323
  Transmission Date: 20061013
  Serious: Yes (Life-Threatening)
  Sender: FDA-Public Use
  Company Number: 2006042130

PATIENT
  Sex: Female

DRUGS (2)
  1. DOXAZOSIN (DOXAZOSIN) [Suspect]
     Indication: HYPERTENSION
     Dosage: ORAL
     Route: 048
  2. ALL OTHER NON-THERAPEUTIC PRODUCTS (ALL OTHER NON-THERAPEUTIC PRODUCTS [Suspect]
     Indication: ILL-DEFINED DISORDER
     Dosage: ORAL
     Route: 048

REACTIONS (10)
  - ARTHRALGIA [None]
  - ATRIAL FIBRILLATION [None]
  - BEDRIDDEN [None]
  - DEHYDRATION [None]
  - HEADACHE [None]
  - LETHARGY [None]
  - MALAISE [None]
  - PALPITATIONS [None]
  - TACHYCARDIA [None]
  - VIRAL INFECTION [None]
